FAERS Safety Report 21653666 (Version 3)
Quarter: 2023Q2

REPORT INFORMATION
  Report Type: Spontaneous
  Country: DE (occurrence: DE)
  Receive Date: 20221129
  Receipt Date: 20230601
  Transmission Date: 20230722
  Serious: Yes (Hospitalization, Other)
  Sender: FDA-Public Use
  Company Number: DE-ALKEM LABORATORIES LIMITED-DE-ALKEM-2022-13150

PATIENT
  Age: 40 Year
  Sex: Female
  Weight: 80 kg

DRUGS (9)
  1. FINGOLIMOD [Suspect]
     Active Substance: FINGOLIMOD
     Indication: Relapsing-remitting multiple sclerosis
     Dosage: 0.5 MILLIGRAMS, QD (EVERY 1 DAY) (CAPSULE, HARD)
     Route: 048
     Dates: start: 20190116
  2. FINGOLIMOD [Suspect]
     Active Substance: FINGOLIMOD
     Dosage: 0.5 MILLIGRAMS, (CAPSULE, HARD)
     Route: 048
     Dates: start: 20210727
  3. CANDESARTAN [Concomitant]
     Active Substance: CANDESARTAN
     Indication: Hypertension
     Dosage: 4 MILLIGRAMS, QD (EVERY 1 DAY)
     Route: 048
     Dates: start: 20201002, end: 20210122
  4. ENOXAPARIN SODIUM [Concomitant]
     Active Substance: ENOXAPARIN SODIUM
     Indication: Prophylaxis
     Dosage: 20 MILLIGRAMS, QD (EVERY 1 DAY)
     Route: 058
     Dates: start: 20190325, end: 20190327
  5. DALFAMPRIDINE [Concomitant]
     Active Substance: DALFAMPRIDINE
     Indication: Gait disturbance
     Dosage: 20 MILLIGRAM, QD (EVERY 1 DAY)
     Route: 048
     Dates: start: 20190708, end: 20190901
  6. METHYLPREDNISOLONE [Concomitant]
     Active Substance: METHYLPREDNISOLONE
     Indication: Multiple sclerosis relapse
     Dosage: 1000 MILLIGRAMS, QD (EVERY 1 DAY)
     Route: 042
     Dates: start: 20190325, end: 20190327
  7. MIRTAZAPINE [Concomitant]
     Active Substance: MIRTAZAPINE
     Indication: Depression
     Dosage: 15 MILLIGRAMS, QD (EVERY 1 DAY)
     Route: 048
     Dates: start: 20190708, end: 20190722
  8. MIRTAZAPINE [Concomitant]
     Active Substance: MIRTAZAPINE
     Dosage: 7.5 MILLIGRAMS, QD (EVERY 1 DAY)
     Route: 048
     Dates: start: 20190723, end: 20200421
  9. ZOPICLONE [Concomitant]
     Active Substance: ZOPICLONE
     Indication: Insomnia
     Dosage: 7.5 MILLIGRAM
     Route: 048
     Dates: start: 20210122

REACTIONS (1)
  - Cervix carcinoma [Recovered/Resolved]

NARRATIVE: CASE EVENT DATE: 20210727
